FAERS Safety Report 6543976-9 (Version None)
Quarter: 2010Q1

REPORT INFORMATION
  Report Type: 
  Country: None (occurrence: None)
  Receive Date: 20100120
  Receipt Date: 20100108
  Transmission Date: 20100710
  Serious: Yes (Other)
  Sender: FDA-Public Use
  Company Number: PHHY2010BR01016

PATIENT
  Sex: Male

DRUGS (5)
  1. DIOVAN AMLO FIX [Suspect]
     Dosage: 1 TABLET (160/5 MG) DAILY
     Dates: start: 20070401
  2. DIOVAN AMLO FIX [Suspect]
     Dosage: HALF TABLET (160/5 MG) DAILY
  3. CITALOPRAM HYDROBROMIDE [Concomitant]
     Dosage: UNK
  4. DEXA-CITONEURIN [Concomitant]
     Dosage: UNK
  5. PANTOPRAZOLE [Concomitant]
     Dosage: UNK

REACTIONS (5)
  - BLOOD PRESSURE DECREASED [None]
  - BLOOD PRESSURE INCREASED [None]
  - CEREBRAL ISCHAEMIA [None]
  - CONCOMITANT DISEASE AGGRAVATED [None]
  - GAIT DISTURBANCE [None]
